FAERS Safety Report 9014030 (Version 1)
Quarter: 2013Q1

REPORT INFORMATION
  Report Type: Spontaneous
  Country: US (occurrence: None)
  Receive Date: 20130109
  Receipt Date: 20130109
  Transmission Date: 20140127
  Serious: Yes (Other)
  Sender: FDA-Public Use
  Company Number: None

PATIENT
  Sex: Female

DRUGS (2)
  1. XELODA [Suspect]
     Dosage: 1500MG BID PO
     Route: 048
     Dates: start: 20121120
  2. XELODA [Suspect]
     Dosage: 300MG BID PO
     Route: 048
     Dates: start: 20121120

REACTIONS (5)
  - Nausea [None]
  - Asthenia [None]
  - Pharyngeal oedema [None]
  - Hearing impaired [None]
  - Visual impairment [None]
